FAERS Safety Report 19976114 (Version 1)
Quarter: 2021Q4

REPORT INFORMATION
  Report Type: Spontaneous
  Country: JP (occurrence: JP)
  Receive Date: 20211021
  Receipt Date: 20211021
  Transmission Date: 20220303
  Serious: Yes (Hospitalization, Other)
  Sender: FDA-Public Use
  Company Number: JP-SA-2021SA345688

PATIENT
  Age: 49 Year
  Sex: Female

DRUGS (5)
  1. ALLEGRA [Suspect]
     Active Substance: FEXOFENADINE HYDROCHLORIDE
     Indication: Pruritus
     Dosage: UNK
     Route: 048
     Dates: start: 2020, end: 202006
  2. BILASTINE [Suspect]
     Active Substance: BILASTINE
     Indication: Pruritus
     Dosage: UNK
     Route: 048
     Dates: start: 2020, end: 202006
  3. HYDROXYZINE HYDROCHLORIDE [Concomitant]
     Active Substance: HYDROXYZINE HYDROCHLORIDE
     Indication: Pruritus
     Dosage: UNK
     Route: 042
     Dates: start: 2020
  4. DEXCHLORPHENIRAMINE MALEATE [Concomitant]
     Active Substance: DEXCHLORPHENIRAMINE MALEATE
     Indication: Pruritus
     Dosage: UNK
     Route: 042
     Dates: start: 2020
  5. OLOPATADINE HYDROCHLORIDE [Concomitant]
     Active Substance: OLOPATADINE HYDROCHLORIDE
     Indication: Pruritus
     Dosage: UNK
     Route: 048
     Dates: start: 2020

REACTIONS (2)
  - Acute generalised exanthematous pustulosis [Recovered/Resolved]
  - Erythema [Recovered/Resolved]

NARRATIVE: CASE EVENT DATE: 20200601
